FAERS Safety Report 6003356-1 (Version None)
Quarter: 2008Q4

REPORT INFORMATION
  Report Type: 
  Country: None (occurrence: None)
  Receive Date: 20081215
  Receipt Date: 20081215
  Transmission Date: 20090506
  Serious: No
  Sender: FDA-Public Use
  Company Number: None

PATIENT
  Age: 52 Year
  Sex: Male
  Weight: 86.1834 kg

DRUGS (1)
  1. 99M TECHNETIUM MYOVIEW UNKNOWN UNKNOWN [Suspect]
     Indication: PALPITATIONS
     Dosage: 8.6MCI AT REST IV
     Route: 042
     Dates: start: 20060614, end: 20060614

REACTIONS (5)
  - ERYTHEMA [None]
  - PRURITUS [None]
  - SKIN EXFOLIATION [None]
  - SKIN HYPERTROPHY [None]
  - SKIN SWELLING [None]
